FAERS Safety Report 21458784 (Version 1)
Quarter: 2022Q4

REPORT INFORMATION
  Report Type: Spontaneous
  Country: DE (occurrence: DE)
  Receive Date: 20221014
  Receipt Date: 20221014
  Transmission Date: 20230112
  Serious: Yes (Other)
  Sender: FDA-Public Use
  Company Number: DE-PROCTER+GAMBLE-PH22008904

PATIENT
  Age: 32 Year
  Sex: Male
  Weight: 86 kg

DRUGS (4)
  1. IBUPROFEN [Suspect]
     Active Substance: IBUPROFEN
     Indication: Product used for unknown indication
     Dosage: 10 TABLET, 1 ONLY, ORAL, PROBABLE EXPOSURE
     Route: 048
     Dates: start: 20220824, end: 20220824
  2. ANAFRANIL [Suspect]
     Active Substance: CLOMIPRAMINE HYDROCHLORIDE
     Indication: Product used for unknown indication
     Dosage: 9 TABLET, 1 ONLY, (MAXIMUM), ORAL, PROBABLE EXPOSURE
     Route: 048
     Dates: start: 20220824, end: 20220824
  3. DULOXETINE [Suspect]
     Active Substance: DULOXETINE
     Indication: Product used for unknown indication
     Dosage: 28 TABLET, 1 ONLY, (MAXIMUM), ORAL, PROBABLE EXPOSURE
     Route: 048
     Dates: start: 20220824, end: 20220824
  4. CHOLECALCIFEROL [Suspect]
     Active Substance: CHOLECALCIFEROL
     Indication: Product used for unknown indication
     Dosage: 25 TABLET, 1 ONLY
     Route: 048
     Dates: start: 20220824, end: 20220824

REACTIONS (2)
  - Suicide attempt [Unknown]
  - Somnolence [Not Recovered/Not Resolved]

NARRATIVE: CASE EVENT DATE: 20220801
